FAERS Safety Report 8584990-1 (Version None)
Quarter: 2012Q3

REPORT INFORMATION
  Report Type: 
  Country: None (occurrence: None)
  Receive Date: 20120810
  Receipt Date: 20120806
  Transmission Date: 20120928
  Serious: Yes (Other)
  Sender: FDA-Public Use
  Company Number: US-PFIZER INC-2012192190

PATIENT
  Sex: Male

DRUGS (1)
  1. XALKORI [Suspect]
     Dosage: UNK
     Route: 048

REACTIONS (3)
  - DYSPHAGIA [None]
  - PNEUMONIA ASPIRATION [None]
  - OESOPHAGITIS [None]
